FAERS Safety Report 7989964-7 (Version None)
Quarter: 2011Q4

REPORT INFORMATION
  Report Type: 
  Country: None (occurrence: None)
  Receive Date: 20111219
  Receipt Date: 20110412
  Transmission Date: 20120403
  Serious: No
  Sender: FDA-Public Use
  Company Number: US-ASTRAZENECA-2011SE21412

PATIENT
  Age: 47 Year
  Sex: Female
  Weight: 68.9 kg

DRUGS (1)
  1. CRESTOR [Suspect]
     Indication: BLOOD CHOLESTEROL
     Route: 048
     Dates: start: 20100101

REACTIONS (3)
  - DRUG DOSE OMISSION [None]
  - SCAR EXCISION [None]
  - COLONOSCOPY [None]
